FAERS Safety Report 18320806 (Version 1)
Quarter: 2020Q3

REPORT INFORMATION
  Report Type: Spontaneous
  Country: NL (occurrence: NL)
  Receive Date: 20200929
  Receipt Date: 20200929
  Transmission Date: 20201103
  Serious: Yes (Other)
  Sender: FDA-Public Use
  Company Number: NL-SUN PHARMACEUTICAL INDUSTRIES LTD-2020RR-262482

PATIENT
  Sex: Male
  Weight: 70 kg

DRUGS (5)
  1. SERTRALINE [Suspect]
     Active Substance: SERTRALINE HYDROCHLORIDE
     Indication: DEPRESSION
     Dosage: 75 ()
     Route: 065
     Dates: start: 201909, end: 20190924
  2. COLECALCIFEROL CAPSULE   5600IE / BRAND NAME NOT SPECIFIEDCOLECALCI... [Concomitant]
     Indication: PRODUCT USED FOR UNKNOWN INDICATION
     Dosage: CAPSULE, 5600 EENHEDEN ()
     Route: 065
  3. CLONAZEPAM TABLET 0,5MG / BRAND NAME NOT SPECIFIEDCLONAZEPAM TABLET... [Concomitant]
     Indication: PRODUCT USED FOR UNKNOWN INDICATION
     Dosage: TABLET, 0,5 MG (MILLIGRAM) ()
     Route: 065
  4. CLOPIDOGREL TABLET   75MG / BRAND NAME NOT SPECIFIEDCLOPIDOGREL TAB... [Concomitant]
     Indication: PRODUCT USED FOR UNKNOWN INDICATION
     Dosage: TABLET, 75 MG (MILLIGRAM) ()
     Route: 065
  5. OLANZAPINE SMELTTABLET 10MG / BRAND NAME NOT SPECIFIEDOLANZAPINE SM... [Concomitant]
     Indication: PRODUCT USED FOR UNKNOWN INDICATION
     Dosage: SMELTTABLET, 10 MG (MILLIGRAM) ()
     Route: 065

REACTIONS (2)
  - Parkinsonism [Recovered/Resolved]
  - Urinary incontinence [Recovered/Resolved]
